FAERS Safety Report 6153820-X (Version None)
Quarter: 2009Q2

REPORT INFORMATION
  Report Type: 
  Country: None (occurrence: None)
  Receive Date: 20090414
  Receipt Date: 20070919
  Transmission Date: 20091009
  Serious: Yes (Hospitalization, Other)
  Sender: FDA-Public Use
  Company Number: US-ASTRAZENECA-2006UW22211

PATIENT
  Age: 20 Year
  Sex: Male
  Weight: 72.6 kg

DRUGS (44)
  1. SEROQUEL [Suspect]
     Indication: BIPOLAR DISORDER
     Route: 048
     Dates: start: 19980101
  2. SEROQUEL [Suspect]
     Indication: SLEEP DISORDER
     Route: 048
     Dates: start: 19980101
  3. SEROQUEL [Suspect]
     Dosage: 20 MG - 300 MG
     Route: 048
     Dates: start: 19980101
  4. SEROQUEL [Suspect]
     Dosage: 20 MG - 300 MG
     Route: 048
     Dates: start: 19980101
  5. ZYPREXA [Concomitant]
  6. PROMETHAZINE [Concomitant]
  7. FENTANYL [Concomitant]
  8. LIDOCAINE [Concomitant]
  9. CEFAZOLIN AND DEXTROSE [Concomitant]
  10. KETOROLAC [Concomitant]
  11. SODIUM CHLORIDE [Concomitant]
  12. EPINEPHRINE [Concomitant]
  13. ATROPINE [Concomitant]
  14. MEPIVACAINE HCL [Concomitant]
  15. ONDANSETRON [Concomitant]
  16. SUCCINYLCHOLINE [Concomitant]
  17. MIDAZOLAM HCL [Concomitant]
  18. PROPOFOL [Concomitant]
  19. CLINDAMYCIN HCL [Concomitant]
  20. INSULIN GLARGINE [Concomitant]
  21. METOPROLOL TARTRATE [Concomitant]
  22. HYDROCHLOROTHIAZIDE [Concomitant]
  23. GEMFIBROZIL [Concomitant]
  24. NIACIN [Concomitant]
  25. ACETYLSALICYLIC ACID SRT [Concomitant]
  26. TOPIRAMATE [Concomitant]
  27. MORPHINE [Concomitant]
  28. METRONIDAZOLE [Concomitant]
  29. CIPROFLOXACIN [Concomitant]
  30. PERCOCET [Concomitant]
  31. ENALAPRIL [Concomitant]
  32. LORAZEPAM [Concomitant]
  33. NEOSPORIN [Concomitant]
  34. CLONIDINE [Concomitant]
  35. OXYCODONE HCL [Concomitant]
  36. GLYCOPYRROLATE [Concomitant]
  37. ZOLPIDEM [Concomitant]
  38. CANDESARTAN [Concomitant]
  39. OXYCONTIN [Concomitant]
  40. INSULIN LISPRO [Concomitant]
  41. PROTONIX [Concomitant]
  42. MAALOX [Concomitant]
  43. LOTENSIN [Concomitant]
  44. LOPID [Concomitant]

REACTIONS (18)
  - AFFECTIVE DISORDER [None]
  - AGITATION [None]
  - ANXIETY [None]
  - ASTHENIA [None]
  - CONVULSION [None]
  - DIABETES MELLITUS [None]
  - DRUG ABUSE [None]
  - DRUG DEPENDENCE [None]
  - HYPERGLYCAEMIA [None]
  - HYPERLIPIDAEMIA [None]
  - IRRITABILITY [None]
  - JUDGEMENT IMPAIRED [None]
  - OESOPHAGITIS [None]
  - PAIN [None]
  - PANCREATITIS [None]
  - POLYSUBSTANCE DEPENDENCE [None]
  - SUICIDE ATTEMPT [None]
  - WEIGHT FLUCTUATION [None]
